FAERS Safety Report 4964390-3 (Version None)
Quarter: 2006Q2

REPORT INFORMATION
  Report Type: 
  Country: None (occurrence: None)
  Receive Date: 20060406
  Receipt Date: 20060327
  Transmission Date: 20061013
  Serious: Yes (Disabling)
  Sender: FDA-Public Use
  Company Number: PHBS2006BR04696

PATIENT
  Age: 40 Year
  Sex: Female
  Weight: 58 kg

DRUGS (1)
  1. CODATEN [Suspect]
     Indication: PAIN
     Dosage: 1 TAB/DAY
     Route: 048
     Dates: start: 20060323, end: 20060326

REACTIONS (1)
  - APHONIA [None]
